FAERS Safety Report 4502403-3 (Version None)
Quarter: 2004Q4

REPORT INFORMATION
  Report Type: 
  Country: None (occurrence: None)
  Receive Date: 20041110
  Receipt Date: 20041025
  Transmission Date: 20050328
  Serious: Yes (Hospitalization)
  Sender: FDA-Public Use
  Company Number: DSA_25267_2004

PATIENT
  Age: 74 Year
  Sex: Male

DRUGS (1)
  1. DILTIAZEM HYDROCHLORIDE [Suspect]
     Dosage: 300 MG Q DAY PO
     Route: 048
     Dates: start: 20040615, end: 20040101

REACTIONS (8)
  - BLOOD POTASSIUM INCREASED [None]
  - BUNDLE BRANCH BLOCK LEFT [None]
  - CEREBRAL ATROPHY [None]
  - DYSARTHRIA [None]
  - FACIAL PARESIS [None]
  - IATROGENIC INJURY [None]
  - NERVOUS SYSTEM DISORDER [None]
  - SINUS BRADYCARDIA [None]
